FAERS Safety Report 6264578-8 (Version None)
Quarter: 2009Q3

REPORT INFORMATION
  Report Type: 
  Country: None (occurrence: None)
  Receive Date: 20090710
  Receipt Date: 20090701
  Transmission Date: 20100115
  Serious: Yes (Hospitalization, Other)
  Sender: FDA-Public Use
  Company Number: PHHY2009FR27033

PATIENT
  Age: 75 Year
  Sex: Female
  Weight: 55 kg

DRUGS (8)
  1. TEGRETOL-XR [Suspect]
     Dosage: 400 MG, TID
     Route: 048
     Dates: end: 20090605
  2. TEGRETOL-XR [Interacting]
     Dosage: 400 MG, BID
     Dates: start: 20090605
  3. DI-ANTALVIC [Interacting]
     Dosage: 4-6 CAPSULES DAILY
     Dates: start: 20090525, end: 20090605
  4. MICARDIS [Concomitant]
     Dosage: UNK
     Dates: start: 20090604
  5. HYPERIUM [Concomitant]
     Dosage: 1 MG, QD
     Dates: start: 20090604
  6. ORBENIN CAP [Concomitant]
     Dosage: 3 MG, QD
     Dates: start: 20090525, end: 20090611
  7. LOVENOX [Concomitant]
     Dosage: 0.4 ML, QD
  8. SPECIAFOLDINE [Concomitant]
     Dosage: 1 DF, QD

REACTIONS (15)
  - ANTICONVULSANT DRUG LEVEL ABOVE THERAPEUTIC [None]
  - APHASIA [None]
  - ARTHRITIS INFECTIVE [None]
  - CEREBRAL HYPOPERFUSION [None]
  - CONFUSIONAL STATE [None]
  - CREATININE RENAL CLEARANCE DECREASED [None]
  - DISORIENTATION [None]
  - DRUG INTERACTION [None]
  - DYSARTHRIA [None]
  - HYPERTENSION [None]
  - HYPOTENSION [None]
  - RENAL FAILURE [None]
  - SPEECH DISORDER [None]
  - SURGERY [None]
  - URINARY TRACT INFECTION [None]
